FAERS Safety Report 12601150 (Version 2)
Quarter: 2016Q4

REPORT INFORMATION
  Report Type: Spontaneous
  Country: AU (occurrence: AU)
  Receive Date: 20160728
  Receipt Date: 20161005
  Transmission Date: 20170207
  Serious: Yes (Other)
  Sender: FDA-Public Use
  Company Number: AU-BAXTER-2016BAX039566

PATIENT
  Sex: Female

DRUGS (7)
  1. ENDOXAN CYCLOPHOSPHAMIDE 2G (AS MONOHYDRATE) POWDER FOR INJECTION VIAL [Suspect]
     Active Substance: CYCLOPHOSPHAMIDE
     Indication: BREAST CANCER
     Dosage: FINISHED 3 CYCLES OF FEC
     Route: 065
     Dates: start: 20160426, end: 20160607
  2. FLUOROURACIL. [Suspect]
     Active Substance: FLUOROURACIL
     Indication: BREAST CANCER
     Dosage: FINISHED 3 CYCLES OF FEC
     Route: 065
     Dates: start: 20160426, end: 20160607
  3. EPIRUBICIN [Suspect]
     Active Substance: EPIRUBICIN
     Indication: BREAST CANCER
     Dosage: FINISHED 3 CYCLES OF FEC
     Route: 065
     Dates: start: 20160426, end: 20160607
  4. DEXAMETHASONE. [Suspect]
     Active Substance: DEXAMETHASONE
     Indication: PROPHYLAXIS OF NAUSEA AND VOMITING
     Dosage: STAT
     Route: 042
     Dates: start: 20160628, end: 20160628
  5. PALONOSETRON [Suspect]
     Active Substance: PALONOSETRON
     Indication: PROPHYLAXIS OF NAUSEA AND VOMITING
     Dosage: STAT
     Route: 042
     Dates: start: 20160628, end: 20160628
  6. BAXTER 0.9% SODIUM CHLORIDE 9G_L INJECTION BP BAG AHB1324 [Suspect]
     Active Substance: SODIUM CHLORIDE
     Indication: MEDICATION DILUTION
     Dosage: 1ST CYCLE
     Route: 042
     Dates: start: 20160628, end: 20160628
  7. [PSS GPN] DOCETAXEL [Suspect]
     Active Substance: DOCETAXEL
     Indication: BREAST CANCER
     Dosage: 1ST CYCLE, 80 MG VIALS
     Route: 042
     Dates: start: 20160628, end: 20160628

REACTIONS (2)
  - Palmar-plantar erythrodysaesthesia syndrome [Recovered/Resolved]
  - Arthralgia [Recovered/Resolved]
